FAERS Safety Report 8538153-6 (Version None)
Quarter: 2012Q3

REPORT INFORMATION
  Report Type: 
  Country: None (occurrence: None)
  Receive Date: 20120726
  Receipt Date: 20120724
  Transmission Date: 20120928
  Serious: Yes (Hospitalization)
  Sender: FDA-Public Use
  Company Number: DE-AMGEN-DEUSP2012040563

PATIENT
  Age: 68 Year
  Sex: Female
  Weight: 50 kg

DRUGS (5)
  1. NEULASTA [Suspect]
     Indication: CHEMOTHERAPY
     Dosage: 6 MG, QCYCLE
     Route: 058
     Dates: start: 20120510, end: 20120622
  2. EPIRUBICIN [Concomitant]
     Indication: BREAST CANCER
     Dosage: 90 MG/M2, Q3WK
     Route: 042
     Dates: start: 20120417, end: 20120622
  3. CYCLOPHOSPHAMIDE [Concomitant]
     Indication: BREAST CANCER
     Dosage: 600 MG/M2, Q3WK
     Route: 042
     Dates: start: 20120417, end: 20120622
  4. TAXOL [Concomitant]
  5. RETACRIT [Concomitant]
     Indication: ANAEMIA
     Dosage: 30000 IU, UNK
     Route: 058
     Dates: start: 20120101, end: 20120625

REACTIONS (1)
  - DRUG EFFECT DECREASED [None]
